FAERS Safety Report 4309659-0 (Version None)
Quarter: 2004Q1

REPORT INFORMATION
  Report Type: 
  Country: None (occurrence: None)
  Receive Date: 20040301
  Receipt Date: 20040218
  Transmission Date: 20041129
  Serious: Yes (Hospitalization, Other)
  Sender: FDA-Public Use
  Company Number: 2004199821JP

PATIENT
  Age: 55 Year
  Sex: Female
  Weight: 53 kg

DRUGS (4)
  1. ETHINYL ESTRADIOL AND NORETHINDRONE [Suspect]
     Indication: HORMONE REPLACEMENT THERAPY
     Dates: start: 20020101
  2. NASANYL (NAFARELIN ACETATE) SPRAY [Suspect]
     Indication: HORMONE REPLACEMENT THERAPY
     Dates: start: 19960101
  3. ALDACTONE [Concomitant]
  4. FUROSEMIDE [Concomitant]

REACTIONS (3)
  - DEEP VEIN THROMBOSIS [None]
  - LOSS OF CONSCIOUSNESS [None]
  - PULMONARY EMBOLISM [None]
